FAERS Safety Report 8341734-6 (Version None)
Quarter: 2012Q2

REPORT INFORMATION
  Report Type: 
  Country: None (occurrence: None)
  Receive Date: 20120507
  Receipt Date: 20120501
  Transmission Date: 20120825
  Serious: No
  Sender: FDA-Public Use
  Company Number: US-TEVA-336510USA

PATIENT
  Sex: Female
  Weight: 77.18 kg

DRUGS (2)
  1. LEVOTHYROXINE SODIUM [Concomitant]
  2. COPAXONE [Suspect]
     Indication: MULTIPLE SCLEROSIS
     Dosage: 20 MILLIGRAM;
     Route: 058
     Dates: start: 20120113

REACTIONS (1)
  - FAECAL INCONTINENCE [None]
